FAERS Safety Report 17519129 (Version 1)
Quarter: 2020Q1

REPORT INFORMATION
  Report Type: Spontaneous
  Country: GB (occurrence: GB)
  Receive Date: 20200310
  Receipt Date: 20200310
  Transmission Date: 20200409
  Serious: Yes (Other)
  Sender: FDA-Public Use
  Company Number: GB-TEVA-2020-GB-1196236

PATIENT
  Age: 72 Year
  Sex: Female
  Weight: 78 kg

DRUGS (9)
  1. EZETIMIBE. [Concomitant]
     Active Substance: EZETIMIBE
     Dosage: ALLERGIC TO STATINS
  2. LOSARTAN. [Concomitant]
     Active Substance: LOSARTAN
  3. LINSEED [Concomitant]
     Active Substance: HERBALS\LINSEED OIL
     Indication: DRY EYE
     Dosage: ALLERGIC TO FISH OILS
  4. ISOSORBIDE MONONITRATE. [Suspect]
     Active Substance: ISOSORBIDE MONONITRATE
     Indication: ANGINA UNSTABLE
     Dosage: 10 MG AT8.00 A.M FOLLOWED BY 10MG AT2.00 P.M . ALS TRIED A SINGLE 10MG DOSE FOR THREE DAYS ONE WEEK
     Route: 048
     Dates: start: 20200207, end: 20200215
  5. HYLO-FORTE [Concomitant]
     Active Substance: HYALURONATE SODIUM
  6. AMLODIPINE [Concomitant]
     Active Substance: AMLODIPINE BESYLATE
  7. RABEPRAZOLE SODIUM. [Concomitant]
     Active Substance: RABEPRAZOLE SODIUM
  8. BENDROFLUMETHIAZIDE [Concomitant]
     Active Substance: BENDROFLUMETHIAZIDE
  9. ACETYLSALICYLIC ACID [Concomitant]
     Active Substance: ASPIRIN

REACTIONS (4)
  - Fear [Unknown]
  - Chest pain [Recovered/Resolved with Sequelae]
  - Headache [Recovered/Resolved with Sequelae]
  - Nausea [Recovered/Resolved with Sequelae]

NARRATIVE: CASE EVENT DATE: 20200207
